FAERS Safety Report 20519148 (Version 3)
Quarter: 2023Q1

REPORT INFORMATION
  Report Type: Report from Study
  Country: US (occurrence: US)
  Receive Date: 20220225
  Receipt Date: 20230201
  Transmission Date: 20230418
  Serious: No
  Sender: FDA-Public Use
  Company Number: US-KYOWAKIRIN-2022BKK002219

PATIENT

DRUGS (3)
  1. CRYSVITA [Suspect]
     Active Substance: BUROSUMAB-TWZA
     Indication: Hereditary hypophosphataemic rickets
     Dosage: 40 MG, ONCE EVERY 14 DAYS
     Route: 058
     Dates: start: 20180825
  2. CRYSVITA [Suspect]
     Active Substance: BUROSUMAB-TWZA
     Dosage: 40 MG, EVERY 14 DAYS
     Route: 058
  3. CRYSVITA [Suspect]
     Active Substance: BUROSUMAB-TWZA
     Dosage: 40 MG, EVERY 14 DAYS
     Route: 058

REACTIONS (16)
  - Multiple allergies [Unknown]
  - Sleep disorder [Not Recovered/Not Resolved]
  - Nightmare [Recovering/Resolving]
  - Depression [Unknown]
  - Knee deformity [Recovering/Resolving]
  - Gastrooesophageal reflux disease [Unknown]
  - Generalised anxiety disorder [Unknown]
  - Attention deficit hyperactivity disorder [Unknown]
  - Hyperaesthesia teeth [Unknown]
  - Arthralgia [Not Recovered/Not Resolved]
  - Abdominal pain [Unknown]
  - Back pain [Unknown]
  - Myalgia [Unknown]
  - Headache [Recovering/Resolving]
  - Pain in extremity [Unknown]
  - Musculoskeletal pain [Unknown]
